FAERS Safety Report 9887958 (Version 1)
Quarter: 2014Q1

REPORT INFORMATION
  Report Type: Spontaneous
  Country: US (occurrence: None)
  Receive Date: 20140207
  Receipt Date: 20140207
  Transmission Date: 20141002
  Serious: No
  Sender: FDA-Public Use
  Company Number: None

PATIENT
  Age: 53 Year
  Sex: Female

DRUGS (1)
  1. VARENICLINE [Suspect]

REACTIONS (5)
  - Depression [None]
  - Pruritus generalised [None]
  - Scratch [None]
  - Treatment noncompliance [None]
  - Haemorrhage [None]
